FAERS Safety Report 4560922-8 (Version None)
Quarter: 2005Q1

REPORT INFORMATION
  Report Type: 
  Country: None (occurrence: None)
  Receive Date: 20050126
  Receipt Date: 20040115
  Transmission Date: 20050727
  Serious: Yes (Hospitalization)
  Sender: FDA-Public Use
  Company Number: US-BRISTOL-MYERS SQUIBB COMPANY-12478996

PATIENT
  Age: 52 Year
  Sex: Female
  Weight: 109 kg

DRUGS (5)
  1. GLUCOPHAGE [Suspect]
     Indication: DIABETES MELLITUS
     Route: 048
     Dates: end: 20030401
  2. VIOXX [Concomitant]
  3. THIAZIDE [Concomitant]
  4. PROVENTIL [Concomitant]
  5. INSULIN [Concomitant]

REACTIONS (1)
  - LACTIC ACIDOSIS [None]
